FAERS Safety Report 20753967 (Version 1)
Quarter: 2022Q2

REPORT INFORMATION
  Report Type: Spontaneous
  Country: US (occurrence: None)
  Receive Date: 20220426
  Receipt Date: 20220426
  Transmission Date: 20220720
  Serious: No
  Sender: FDA-Public Use
  Company Number: US-ROCHE-2877742

PATIENT
  Sex: Female
  Weight: 99.8 kg

DRUGS (4)
  1. ESBRIET [Suspect]
     Active Substance: PIRFENIDONE
     Indication: Product used for unknown indication
     Route: 065
     Dates: end: 20210714
  2. TYVASO [Suspect]
     Active Substance: TREPROSTINIL
     Indication: Pulmonary arterial hypertension
     Dosage: 18-54 MICROGRAM(3-9 BREATHS)
     Route: 065
     Dates: start: 20210504
  3. TYVASO [Suspect]
     Active Substance: TREPROSTINIL
     Dosage: 0.6 MG/ML
     Route: 065
  4. ELIQUIS [Concomitant]
     Active Substance: APIXABAN

REACTIONS (5)
  - Illness [Unknown]
  - Abdominal discomfort [Unknown]
  - Dyspnoea [Unknown]
  - Secretion discharge [Unknown]
  - Nausea [Unknown]
